FAERS Safety Report 9057908 (Version 1)
Quarter: 2013Q1

REPORT INFORMATION
  Report Type: Spontaneous
  Country: US (occurrence: None)
  Receive Date: 20130204
  Receipt Date: 20130204
  Transmission Date: 20140127
  Serious: Yes (Other)
  Sender: FDA-Public Use
  Company Number: None

PATIENT
  Age: 48 Year
  Sex: Male
  Weight: 81.65 kg

DRUGS (1)
  1. INDOMETHACIN 50 MG CAPS [Suspect]
     Indication: GOUT
     Dosage: 1 CAP. 3X^S DAILY
     Dates: start: 20121031, end: 20130201

REACTIONS (1)
  - Tinnitus [None]
